FAERS Safety Report 7640933-6 (Version None)
Quarter: 2011Q3

REPORT INFORMATION
  Report Type: 
  Country: None (occurrence: None)
  Receive Date: 20110728
  Receipt Date: 20110718
  Transmission Date: 20111222
  Serious: Yes (Hospitalization, Other)
  Sender: FDA-Public Use
  Company Number: IE-JNJFOC-20110606677

PATIENT
  Sex: Male
  Weight: 91.7 kg

DRUGS (14)
  1. TINZAPARIN [Concomitant]
     Indication: PULMONARY EMBOLISM
     Route: 058
     Dates: start: 20110201
  2. ATORVASTATIN [Concomitant]
     Indication: BLOOD CHOLESTEROL INCREASED
     Route: 048
     Dates: end: 20110601
  3. LACTULOSE [Concomitant]
     Indication: CONSTIPATION
     Route: 048
     Dates: end: 20110602
  4. MORPHINE SULFATE [Concomitant]
     Indication: PAIN
     Route: 048
  5. MORPHINE SULFATE [Concomitant]
     Route: 048
  6. ABIRATERONE ACETATE [Suspect]
     Indication: PROSTATE CANCER METASTATIC
     Route: 048
     Dates: start: 20110314, end: 20110522
  7. MORPHINE SULFATE [Concomitant]
     Route: 048
  8. MORPHINE SULFATE [Concomitant]
     Indication: PAIN
     Route: 048
  9. SENNA [Concomitant]
     Indication: CONSTIPATION
     Route: 048
     Dates: end: 20110606
  10. ACETAMINOPHEN [Concomitant]
     Indication: PAIN
     Route: 048
  11. PREDNISOLONE [Suspect]
     Indication: PROSTATE CANCER METASTATIC
     Route: 048
     Dates: start: 20110314, end: 20110522
  12. TINZAPARIN [Concomitant]
     Indication: DEEP VEIN THROMBOSIS
     Route: 058
     Dates: start: 20110201
  13. ABIRATERONE ACETATE [Suspect]
     Route: 048
  14. LANSOPRAZOLE [Concomitant]
     Indication: PROPHYLAXIS AGAINST GASTROINTESTINAL ULCER
     Route: 048

REACTIONS (3)
  - PROSTATIC SPECIFIC ANTIGEN INCREASED [None]
  - SPINAL FRACTURE [None]
  - SPINAL CORD COMPRESSION [None]
